FAERS Safety Report 21905448 (Version 1)
Quarter: 2023Q1

REPORT INFORMATION
  Report Type: Spontaneous
  Country: US (occurrence: None)
  Receive Date: 20230124
  Receipt Date: 20230124
  Transmission Date: 20230418
  Serious: Yes (Other)
  Sender: FDA-Public Use
  Company Number: None

PATIENT
  Age: 39 Year
  Sex: Female
  Weight: 63 kg

DRUGS (2)
  1. HYLENEX RECOMBINANT [Suspect]
     Active Substance: HYALURONIDASE (HUMAN RECOMBINANT)
     Indication: Product used for unknown indication
     Dates: start: 20221118, end: 20230111
  2. ANTIHISTAMINES NOS [Concomitant]
     Active Substance: ANTIHISTAMINES NOS

REACTIONS (1)
  - Burning sensation [None]

NARRATIVE: CASE EVENT DATE: 20230118
